FAERS Safety Report 17249536 (Version 1)
Quarter: 2020Q1

REPORT INFORMATION
  Report Type: Report from Study
  Country: CN (occurrence: CN)
  Receive Date: 20200108
  Receipt Date: 20200108
  Transmission Date: 20200409
  Serious: Yes (Hospitalization)
  Sender: FDA-Public Use
  Company Number: CN-AMGEN-CHNCT2018187757

PATIENT
  Age: 38 Year
  Sex: Male

DRUGS (10)
  1. IRBESARTAN. [Concomitant]
     Active Substance: IRBESARTAN
     Indication: HYPERTENSION
     Dosage: 150 MG, BID
     Route: 048
  2. TRIMETAZIDINE HYDROCHLORIDE [Concomitant]
     Active Substance: TRIMETAZIDINE DIHYDROCHLORIDE
     Indication: HYPERTENSION
     Dosage: 40 MG, BID
     Route: 048
  3. CINACALCET HCL [Suspect]
     Active Substance: CINACALCET HYDROCHLORIDE
     Dosage: 50 MILLIGRAM
     Route: 065
     Dates: start: 20180712, end: 20180905
  4. NIFEDIPINE (II) [Concomitant]
     Indication: HYPERTENSION
     Dosage: 30 MG, BID
     Route: 048
  5. CINACALCET HCL [Suspect]
     Active Substance: CINACALCET HYDROCHLORIDE
     Dosage: 25 MILLIGRAM
     Route: 065
     Dates: start: 20180906, end: 20181107
  6. HEPARIN SODIUM. [Concomitant]
     Active Substance: HEPARIN SODIUM
     Indication: GLOMERULONEPHRITIS CHRONIC
     Dosage: 5000U TIW
     Route: 042
  7. CINACALCET HCL [Suspect]
     Active Substance: CINACALCET HYDROCHLORIDE
     Indication: HYPERPARATHYROIDISM SECONDARY
     Dosage: 25 MILLIGRAM
     Route: 065
     Dates: start: 20180614, end: 20180711
  8. RECOMBINANT HUMAN ERYTHROPOIETIN INJECTION (CHO CELL) [Concomitant]
     Indication: END STAGE RENAL DISEASE
     Dosage: 4000U QD
     Route: 042
  9. HEPARIN SODIUM. [Concomitant]
     Active Substance: HEPARIN SODIUM
     Indication: END STAGE RENAL DISEASE
  10. ISOSORBIDE MONONITRATE. [Concomitant]
     Active Substance: ISOSORBIDE MONONITRATE
     Indication: HYPERTENSION
     Dosage: 30 MILLIGRAM
     Route: 048

REACTIONS (1)
  - Device malfunction [Recovered/Resolved]

NARRATIVE: CASE EVENT DATE: 20181130
